FAERS Safety Report 21239891 (Version 1)
Quarter: 2022Q3

REPORT INFORMATION
  Report Type: Spontaneous
  Country: US (occurrence: US)
  Receive Date: 20220822
  Receipt Date: 20220822
  Transmission Date: 20221027
  Serious: Yes (Hospitalization, Other)
  Sender: FDA-Public Use
  Company Number: US-HQ SPECIALTY-US-2022INT000167

PATIENT

DRUGS (6)
  1. CISPLATIN [Suspect]
     Active Substance: CISPLATIN
     Indication: Cervix carcinoma
     Dosage: 40 MG/M2 ON DAYS 22, 28, 35, 42, 49, AND 56
     Route: 042
  2. CETUXIMAB [Suspect]
     Active Substance: CETUXIMAB
     Indication: Cervix carcinoma
     Dosage: 400 MG/M2 (LOADING DOSE DAY 1)
     Route: 042
  3. CETUXIMAB [Suspect]
     Active Substance: CETUXIMAB
     Dosage: 250 MG/M2 (DAYS 8 AND 15)
     Route: 042
  4. CETUXIMAB [Suspect]
     Active Substance: CETUXIMAB
     Dosage: 250 MG/M2 (GIVEN BEFORE CISPLATIN ON DAYS 22, 28, 35, 42, 49, AND 56)
     Route: 042
  5. CETUXIMAB [Suspect]
     Active Substance: CETUXIMAB
     Dosage: 250 MG/M2 (MONOTHERAPY WEEKLY FOR 12 WEEKS)
     Route: 042
  6. RADIATION THERAPY [Suspect]
     Active Substance: RADIATION THERAPY
     Indication: Cervix carcinoma
     Dosage: UNK
     Route: 065

REACTIONS (5)
  - Small intestinal obstruction [Unknown]
  - Enteritis [Unknown]
  - Abdominal pain [Unknown]
  - Cholangitis infective [Unknown]
  - Bile duct stenosis [Unknown]
